FAERS Safety Report 13862150 (Version 2)
Quarter: 2017Q3

REPORT INFORMATION
  Report Type: Spontaneous
  Country: US (occurrence: US)
  Receive Date: 20170812
  Receipt Date: 20170824
  Transmission Date: 20171127
  Serious: Yes (Other)
  Sender: FDA-Public Use
  Company Number: US-TEVA-774726ACC

PATIENT
  Age: 68 Year
  Sex: Male

DRUGS (3)
  1. SORIATANE [Suspect]
     Active Substance: ACITRETIN
     Indication: SKIN CANCER
     Dosage: 50 MILLIGRAM DAILY;
     Route: 065
  2. SORIATANE [Suspect]
     Active Substance: ACITRETIN
     Dosage: 25 MILLIGRAM DAILY;
     Route: 065
     Dates: start: 201506
  3. SORIATANE [Suspect]
     Active Substance: ACITRETIN
     Dosage: 50 MILLIGRAM DAILY;
     Route: 065

REACTIONS (7)
  - Product label confusion [Unknown]
  - Product use issue [Unknown]
  - Recurrent cancer [Unknown]
  - Incorrect dose administered [Unknown]
  - Drug prescribing error [Unknown]
  - Product use in unapproved indication [Unknown]
  - Drug dose omission [Unknown]
